FAERS Safety Report 12776355 (Version 1)
Quarter: 2016Q3

REPORT INFORMATION
  Report Type: Report from Study
  Country: DE (occurrence: DE)
  Receive Date: 20160923
  Receipt Date: 20160923
  Transmission Date: 20161109
  Serious: Yes (Hospitalization)
  Sender: FDA-Public Use
  Company Number: US-ASTRAZENECA-2016SF00949

PATIENT
  Sex: Female

DRUGS (5)
  1. SYNAGIS [Suspect]
     Active Substance: PALIVIZUMAB
     Indication: CARDIAC FAILURE
     Dosage: 80.6 MG
     Route: 030
     Dates: start: 20090311, end: 20090311
  2. SYNAGIS [Suspect]
     Active Substance: PALIVIZUMAB
     Indication: CARDIAC FAILURE
     Dosage: 69 MG
     Route: 030
     Dates: start: 20081210, end: 20081210
  3. SYNAGIS [Suspect]
     Active Substance: PALIVIZUMAB
     Indication: CARDIAC FAILURE
     Dosage: 70.5 MG
     Route: 030
     Dates: start: 20090211, end: 20090211
  4. SYNAGIS [Suspect]
     Active Substance: PALIVIZUMAB
     Indication: CARDIAC FAILURE
     Dosage: 61.5 MG
     Route: 030
     Dates: start: 20081112, end: 20081112
  5. SYNAGIS [Suspect]
     Active Substance: PALIVIZUMAB
     Indication: CARDIAC FAILURE
     Dosage: 63.8 MG
     Route: 030
     Dates: start: 20090107, end: 20090107

REACTIONS (1)
  - Pneumonia [Unknown]
